FAERS Safety Report 4916708-5 (Version None)
Quarter: 2006Q1

REPORT INFORMATION
  Report Type: 
  Country: None (occurrence: None)
  Receive Date: 20060214
  Receipt Date: 20060202
  Transmission Date: 20060701
  Serious: Yes (Hospitalization)
  Sender: FDA-Public Use
  Company Number: 2006-CZ-00598

PATIENT
  Age: 79 Year
  Sex: Female

DRUGS (14)
  1. TRAMADOL HCL [Suspect]
     Dosage: 50-100 MG 6 HOURLY,
  2. SALINE STERI-NEB (SODIUM CHLORIDE) [Suspect]
     Dosage: 1L
  3. INDAPAMIDE [Concomitant]
  4. ATENOLOL [Concomitant]
  5. VALSARTAN [Concomitant]
  6. BUPIVACAINE [Concomitant]
  7. CYCLIZINE [Concomitant]
  8. DEXAMETHASONE [Concomitant]
  9. DIAMORPHINE [Concomitant]
  10. FENTANYL CITRATE [Concomitant]
  11. ONDANSETRON [Concomitant]
  12. ACETAMINOPHEN [Concomitant]
  13. PROPOFOL [Concomitant]
  14. TIAPROFENIC ACID [Concomitant]

REACTIONS (10)
  - CHEST PAIN [None]
  - CONFUSIONAL STATE [None]
  - DEHYDRATION [None]
  - FEELING ABNORMAL [None]
  - GRAND MAL CONVULSION [None]
  - INAPPROPRIATE ANTIDIURETIC HORMONE SECRETION [None]
  - KNEE ARTHROPLASTY [None]
  - NAUSEA [None]
  - SIMILAR REACTION ON PREVIOUS EXPOSURE TO DRUG [None]
  - VOMITING [None]
